FAERS Safety Report 6622215-4 (Version None)
Quarter: 2010Q1

REPORT INFORMATION
  Report Type: 
  Country: None (occurrence: None)
  Receive Date: 20100310
  Receipt Date: 20100303
  Transmission Date: 20100710
  Serious: Yes (Death)
  Sender: FDA-Public Use
  Company Number: US-BIOGENIDEC-2009BI036851

PATIENT
  Age: 58 Year
  Sex: Female

DRUGS (2)
  1. AVONEX [Suspect]
     Indication: MULTIPLE SCLEROSIS
     Route: 030
     Dates: start: 20090612, end: 20091018
  2. AVONEX [Suspect]
     Route: 030
     Dates: start: 20071012, end: 20081114

REACTIONS (2)
  - OVERDOSE [None]
  - TREATMENT NONCOMPLIANCE [None]
